FAERS Safety Report 10388083 (Version 5)
Quarter: 2015Q1

REPORT INFORMATION
  Report Type: Report from Study
  Country: CA (occurrence: CA)
  Receive Date: 20140815
  Receipt Date: 20150204
  Transmission Date: 20150720
  Serious: Yes (Death, Hospitalization, Other)
  Sender: FDA-Public Use
  Company Number: PHHY2014CA082439

PATIENT
  Age: 53 Year
  Sex: Male

DRUGS (3)
  1. EXJADE [Suspect]
     Active Substance: DEFERASIROX
     Indication: APLASIA PURE RED CELL
     Dosage: 3000 MG, QD
     Route: 048
     Dates: start: 20120101
  2. EXJADE [Suspect]
     Active Substance: DEFERASIROX
     Route: 065
  3. HUMIRA [Concomitant]
     Active Substance: ADALIMUMAB
     Indication: PRODUCT USED FOR UNKNOWN INDICATION
     Route: 065

REACTIONS (11)
  - Loss of consciousness [Unknown]
  - Gastric disorder [Unknown]
  - Histiocytosis haematophagic [Fatal]
  - Serum ferritin increased [Unknown]
  - Viral infection [Unknown]
  - Gastrointestinal disorder [Unknown]
  - Diarrhoea [Unknown]
  - Lymphoma [Fatal]
  - Malaise [Unknown]
  - Abdominal pain [Unknown]
  - Infection [Unknown]

NARRATIVE: CASE EVENT DATE: 20140923
